FAERS Safety Report 14847475 (Version 2)
Quarter: 2018Q2

REPORT INFORMATION
  Report Type: Report from Study
  Country: CA (occurrence: CA)
  Receive Date: 20180504
  Receipt Date: 20180514
  Transmission Date: 20180711
  Serious: Yes (Death, Hospitalization)
  Sender: FDA-Public Use
  Company Number: CA-JNJFOC-20180409526

PATIENT
  Age: 96 Year
  Sex: Male

DRUGS (2)
  1. IMBRUVICA [Suspect]
     Active Substance: IBRUTINIB
     Indication: CHRONIC LYMPHOCYTIC LEUKAEMIA
     Route: 048
     Dates: start: 20180402
  2. IMBRUVICA [Suspect]
     Active Substance: IBRUTINIB
     Indication: CHRONIC LYMPHOCYTIC LEUKAEMIA
     Dosage: STRENGTH = 140 MG
     Route: 048
     Dates: start: 201804

REACTIONS (12)
  - Death [Fatal]
  - Dehydration [Recovering/Resolving]
  - Gait disturbance [Recovering/Resolving]
  - Renal disorder [Unknown]
  - Hypertension [Recovered/Resolved]
  - Arthralgia [Unknown]
  - Diarrhoea [Unknown]
  - Incorrect dose administered [Unknown]
  - Off label use [Unknown]
  - Pneumonia aspiration [Unknown]
  - Fatigue [Recovering/Resolving]
  - White blood cell count increased [Recovering/Resolving]

NARRATIVE: CASE EVENT DATE: 20180424
